FAERS Safety Report 6400673-8 (Version None)
Quarter: 2009Q4

REPORT INFORMATION
  Report Type: 
  Country: None (occurrence: None)
  Receive Date: 20091014
  Receipt Date: 20091009
  Transmission Date: 20100525
  Serious: Yes (Hospitalization)
  Sender: FDA-Public Use
  Company Number: FR-PFIZER INC-2009280790

PATIENT
  Age: 66 Year

DRUGS (3)
  1. VIAGRA [Suspect]
     Dosage: 25 MG, WEEKLY
     Route: 048
     Dates: start: 20061201
  2. VIAGRA [Suspect]
     Dosage: 50 MG, TWICE PER WEEK
     Dates: start: 20070101, end: 20070128
  3. FRAXIPARIN [Concomitant]

REACTIONS (1)
  - OPTIC NEURITIS [None]
